FAERS Safety Report 8948459 (Version 3)
Quarter: 2013Q3

REPORT INFORMATION
  Report Type: Spontaneous
  Country: GB (occurrence: None)
  Receive Date: 20121123
  Receipt Date: 20130823
  Transmission Date: 20140515
  Serious: Yes (Other)
  Sender: FDA-Public Use
  Company Number: AUR-APL-2012-04895

PATIENT
  Age: 51 Year
  Sex: Female

DRUGS (3)
  1. RIBAVIRIN [Suspect]
     Indication: HEPATITIS C
     Route: 048
     Dates: start: 20120721
  2. PEGINTERFERON ALFA- 2B [Suspect]
     Indication: HEPATITIS C
     Route: 058
     Dates: start: 20120721
  3. TELAPREVIR [Suspect]
     Indication: HEPATITIS C
     Dosage: 2250 MG (750 MG,3 IN 1 D)
     Route: 048
     Dates: start: 20120721, end: 20121014

REACTIONS (2)
  - Skin irritation [None]
  - Pruritus [None]
